FAERS Safety Report 7833718-9 (Version None)
Quarter: 2011Q4

REPORT INFORMATION
  Report Type: 
  Country: None (occurrence: None)
  Receive Date: 20111024
  Receipt Date: 20111011
  Transmission Date: 20120403
  Serious: Yes (Other)
  Sender: FDA-Public Use
  Company Number: US-BAYER-2011-083367

PATIENT
  Age: 19 Year
  Sex: Female
  Weight: 56.689 kg

DRUGS (2)
  1. DROSPIRENONE AND ETHINYL ESTRADIOL [Suspect]
     Indication: ACNE
     Dosage: UNK
     Dates: start: 20060101, end: 20091001
  2. YASMIN [Suspect]
     Indication: ACNE
     Dosage: UNK
     Dates: start: 20060101, end: 20091001

REACTIONS (9)
  - CHOLECYSTITIS CHRONIC [None]
  - CHOLELITHIASIS [None]
  - PAIN [None]
  - NEPHROLITHIASIS [None]
  - FAECALITH [None]
  - URINARY TRACT INFECTION [None]
  - INJURY [None]
  - APPENDICITIS [None]
  - GALLBLADDER DISORDER [None]
